FAERS Safety Report 9839873 (Version 2)
Quarter: 2014Q1

REPORT INFORMATION
  Report Type: Report from Study
  Country: NL (occurrence: NL)
  Receive Date: 20140124
  Receipt Date: 20140217
  Transmission Date: 20141002
  Serious: Yes (Death)
  Sender: FDA-Public Use
  Company Number: PHHY2014NL007797

PATIENT
  Age: 77 Year
  Sex: Male

DRUGS (8)
  1. ZOMETA [Suspect]
     Indication: METASTASES TO BONE
     Dosage: 4 MG PER 100 ML, ONCE EVERY 4 WEEKS
     Route: 042
  2. ZOMETA [Suspect]
     Dosage: 4 MG PER 100 ML, ONCE EVERY 4 WEEKS
     Route: 042
     Dates: start: 20120413
  3. ZOMETA [Suspect]
     Dosage: 4 MG PER 100 ML, ONCE EVERY 4 WEEKS
     Route: 042
     Dates: start: 20131223
  4. ACETYLSALICYLIC ACID [Concomitant]
     Dosage: 80 MG, UNK
  5. OXYCONTIN [Concomitant]
     Dosage: UNK UKN, UNK
  6. OMEPRAZOLE [Concomitant]
     Dosage: UNK UKN, UNK
  7. CALCI CHEW [Concomitant]
     Dosage: UNK UKN, UNK
  8. AMITRIPTYLINE [Concomitant]
     Dosage: UNK UKN, UNK

REACTIONS (1)
  - Cerebral haemorrhage [Fatal]
